FAERS Safety Report 4808791-2 (Version None)
Quarter: 2005Q4

REPORT INFORMATION
  Report Type: 
  Country: None (occurrence: None)
  Receive Date: 20051021
  Receipt Date: 20030606
  Transmission Date: 20060501
  Serious: No
  Sender: FDA-Public Use
  Company Number: JP_030601114

PATIENT
  Age: 32 Year
  Sex: Female

DRUGS (1)
  1. ZYPREXA [Suspect]
     Dosage: 10 MG DAY
     Dates: start: 20020101

REACTIONS (1)
  - METRORRHAGIA [None]
